FAERS Safety Report 6479924-X (Version None)
Quarter: 2009Q4

REPORT INFORMATION
  Report Type: 
  Country: None (occurrence: None)
  Receive Date: 20091208
  Receipt Date: 20091124
  Transmission Date: 20100525
  Serious: Yes (Disabling)
  Sender: FDA-Public Use
  Company Number: JP-SANOFI-AVENTIS-2009SA001800

PATIENT
  Sex: Male

DRUGS (3)
  1. ALLEGRA [Suspect]
     Route: 048
  2. MUCOSTA [Concomitant]
  3. ALL OTHER THERAPEUTIC PRODUCTS [Concomitant]

REACTIONS (1)
  - URINARY RETENTION [None]
